FAERS Safety Report 17219255 (Version 1)
Quarter: 2020Q1

REPORT INFORMATION
  Report Type: Spontaneous
  Country: US (occurrence: US)
  Receive Date: 20191230
  Receipt Date: 20191230
  Transmission Date: 20200409
  Serious: Yes (Death, Life-Threatening, Hospitalization, Other)
  Sender: FDA-Public Use
  Company Number: None

PATIENT
  Age: 65 Year
  Sex: Male
  Weight: 74 kg

DRUGS (1)
  1. YESCARTA [Suspect]
     Active Substance: AXICABTAGENE CILOLEUCEL
     Indication: DIFFUSE LARGE B-CELL LYMPHOMA
     Dosage: ?          OTHER FREQUENCY:ONCE;?
     Route: 041
     Dates: start: 20190924, end: 20190924

REACTIONS (7)
  - Hypotension [None]
  - Cardiac arrest [None]
  - Acute respiratory distress syndrome [None]
  - Shock [None]
  - Atrial fibrillation [None]
  - Infection [None]
  - Hypoxia [None]

NARRATIVE: CASE EVENT DATE: 20191018
